FAERS Safety Report 8040776-8 (Version None)
Quarter: 2012Q1

REPORT INFORMATION
  Report Type: 
  Country: None (occurrence: None)
  Receive Date: 20120112
  Receipt Date: 20111230
  Transmission Date: 20120608
  Serious: No
  Sender: FDA-Public Use
  Company Number: US-AMGEN-USASP2011069790

PATIENT
  Age: 50 Year
  Sex: Female

DRUGS (1)
  1. ENBREL [Suspect]
     Indication: RHEUMATOID ARTHRITIS
     Dosage: 50 MG, QWK
     Dates: start: 20111205

REACTIONS (8)
  - PAIN [None]
  - WEIGHT INCREASED [None]
  - MOBILITY DECREASED [None]
  - JOINT STIFFNESS [None]
  - ARTHRALGIA [None]
  - URINE ABNORMALITY [None]
  - POLLAKIURIA [None]
  - DECREASED APPETITE [None]
